FAERS Safety Report 17023131 (Version 1)
Quarter: 2019Q4

REPORT INFORMATION
  Report Type: Spontaneous
  Country: IT (occurrence: IT)
  Receive Date: 20191112
  Receipt Date: 20191112
  Transmission Date: 20200122
  Serious: Yes (Hospitalization, Other)
  Sender: FDA-Public Use
  Company Number: IT-PFIZER INC-2019487851

PATIENT
  Age: 89 Year
  Sex: Female

DRUGS (7)
  1. VALSARTAN. [Concomitant]
     Active Substance: VALSARTAN
     Dosage: 160 MG
     Route: 048
  2. NEBILOX [Concomitant]
     Active Substance: NEBIVOLOL HYDROCHLORIDE
     Dosage: UNK
     Route: 048
  3. NORVASC [Concomitant]
     Active Substance: AMLODIPINE BESYLATE
     Dosage: UNK
     Route: 048
  4. CORDARONE [Suspect]
     Active Substance: AMIODARONE HYDROCHLORIDE
     Indication: ATRIAL FIBRILLATION
     Dosage: 1 DF, QD
     Route: 048
     Dates: start: 20190101, end: 20191020
  5. PRADAXA [Concomitant]
     Active Substance: DABIGATRAN ETEXILATE MESYLATE
     Dosage: UNK
     Route: 048
  6. TORVAST [Concomitant]
     Active Substance: ATORVASTATIN
     Dosage: UNK
     Route: 048
  7. RAMIPRIL. [Concomitant]
     Active Substance: RAMIPRIL
     Dosage: 10 MG
     Route: 048

REACTIONS (1)
  - Long QT syndrome [Unknown]

NARRATIVE: CASE EVENT DATE: 20191020
